FAERS Safety Report 16740643 (Version 1)
Quarter: 2019Q4

REPORT INFORMATION
  Report Type: Spontaneous
  Country: US (occurrence: US)
  Receive Date: 20190824
  Receipt Date: 20190824
  Transmission Date: 20200122
  Serious: No
  Sender: FDA-Public Use
  Company Number: None

PATIENT
  Age: 55 Year
  Sex: Female
  Weight: 52.2 kg

DRUGS (3)
  1. TAMOXIFEN CITRATE TABLETS 20 MG [Suspect]
     Active Substance: TAMOXIFEN CITRATE
     Indication: BREAST CANCER
     Dosage: ?          QUANTITY:30 TABLET(S);?
     Route: 048
  2. MULTII VITAMIN [Concomitant]
  3. VITAMIN C AND ZINC [Concomitant]

REACTIONS (2)
  - Rash [None]
  - Urticaria [None]

NARRATIVE: CASE EVENT DATE: 20190713
